FAERS Safety Report 4889290-9 (Version None)
Quarter: 2006Q1

REPORT INFORMATION
  Report Type: 
  Country: None (occurrence: None)
  Receive Date: 20060120
  Receipt Date: 20060120
  Transmission Date: 20060701
  Serious: Yes (Hospitalization)
  Sender: FDA-Public Use
  Company Number: None

PATIENT
  Sex: Female

DRUGS (1)
  1. OMNICEF [Suspect]
     Indication: PNEUMONIA
     Dosage: 3/4 TSP  BID
     Dates: start: 20041218, end: 20041231

REACTIONS (2)
  - RASH [None]
  - URTICARIA [None]
